FAERS Safety Report 4724237-7 (Version None)
Quarter: 2005Q3

REPORT INFORMATION
  Report Type: 
  Country: None (occurrence: None)
  Receive Date: 20050726
  Receipt Date: 20050714
  Transmission Date: 20060218
  Serious: Yes (Hospitalization)
  Sender: FDA-Public Use
  Company Number: US-JNJFOC-20050605429

PATIENT
  Sex: Male
  Weight: 52.16 kg

DRUGS (5)
  1. REMICADE [Suspect]
     Indication: CROHN'S DISEASE
     Dosage: PAST 4 1/2 YEARS.
     Route: 042
  2. TPN [Concomitant]
  3. TPN [Concomitant]
  4. TPN [Concomitant]
  5. PREDNSIONE [Concomitant]

REACTIONS (1)
  - PULMONARY GRANULOMA [None]
